FAERS Safety Report 4851010-1 (Version None)
Quarter: 2005Q4

REPORT INFORMATION
  Report Type: 
  Country: None (occurrence: None)
  Receive Date: 20051212
  Receipt Date: 20051130
  Transmission Date: 20060501
  Serious: Yes (Hospitalization)
  Sender: FDA-Public Use
  Company Number: JP-MERCK-0512USA00433

PATIENT
  Age: 79 Year
  Sex: Female

DRUGS (2)
  1. CLINORIL [Suspect]
     Indication: MONARTHRITIS
     Route: 048
     Dates: start: 20050601
  2. CLINORIL [Suspect]
     Route: 048
     Dates: start: 20050501

REACTIONS (8)
  - ANAPHYLACTIC SHOCK [None]
  - CHOLANGITIS [None]
  - FLUID RETENTION [None]
  - GASTROINTESTINAL MUCOSAL DISORDER [None]
  - GASTROINTESTINAL PERFORATION [None]
  - HAEMATEMESIS [None]
  - HYPERTROPHY [None]
  - LIVER DISORDER [None]
